FAERS Safety Report 8483867-X (Version None)
Quarter: 2012Q2

REPORT INFORMATION
  Report Type: 
  Country: None (occurrence: None)
  Receive Date: 20120625
  Receipt Date: 20120614
  Transmission Date: 20120825
  Serious: Yes (Hospitalization)
  Sender: FDA-Public Use
  Company Number: 2012SP011407

PATIENT
  Age: 34 Year
  Sex: Female

DRUGS (2)
  1. CELESTONE [Suspect]
     Indication: PROPHYLAXIS
     Dosage: 22.8 MG; QD; IM
     Route: 030
     Dates: start: 20120228
  2. CELESTONE [Suspect]

REACTIONS (7)
  - MATERNAL EXPOSURE DURING PREGNANCY [None]
  - BODY TEMPERATURE INCREASED [None]
  - CAESAREAN SECTION [None]
  - DYSPNOEA EXERTIONAL [None]
  - FLUSHING [None]
  - FEELING HOT [None]
  - PRODUCT QUALITY ISSUE [None]
